FAERS Safety Report 10177925 (Version 1)
Quarter: 2014Q2

REPORT INFORMATION
  Report Type: Spontaneous
  Country: AR (occurrence: AR)
  Receive Date: 20140516
  Receipt Date: 20140516
  Transmission Date: 20141212
  Serious: No
  Sender: FDA-Public Use
  Company Number: PHHY2014AR058203

PATIENT
  Age: 58 Year
  Sex: Female

DRUGS (8)
  1. IMATINIB [Suspect]
     Indication: CHRONIC MYELOID LEUKAEMIA
     Dosage: 400 MG, PER DAY
  2. IMATINIB [Suspect]
     Dosage: 800 MG, PER DAY
  3. NILOTINIB [Suspect]
     Dosage: 800 MG, PER DAY
  4. DASATINIB [Concomitant]
     Dosage: 100 MG, PER DAY
  5. DASATINIB [Concomitant]
     Dosage: 140 MG, BID
  6. DASATINIB [Concomitant]
     Dosage: 100 MG, PER DAY
  7. HYDROXYUREA [Concomitant]
  8. PONATINIB [Concomitant]
     Dosage: 45 MG, DAILY

REACTIONS (1)
  - Therapeutic response decreased [Unknown]
